APPROVED DRUG PRODUCT: ERAXIS
Active Ingredient: ANIDULAFUNGIN
Strength: 100MG/VIAL
Dosage Form/Route: POWDER;INTRAVENOUS
Application: N021632 | Product #002
Applicant: VICURON HOLDINGS LLC
Approved: Nov 14, 2006 | RLD: Yes | RS: Yes | Type: RX